FAERS Safety Report 5762249-5 (Version None)
Quarter: 2008Q2

REPORT INFORMATION
  Report Type: 
  Country: None (occurrence: None)
  Receive Date: 20080609
  Receipt Date: 20080529
  Transmission Date: 20081010
  Serious: Yes (Death)
  Sender: FDA-Public Use
  Company Number: ES-AVENTIS-200813326GDDC

PATIENT
  Age: 62 Year
  Sex: Male

DRUGS (13)
  1. AFLIBERCEPT [Suspect]
     Route: 042
     Dates: start: 20080303, end: 20080303
  2. DOCETAXEL [Suspect]
     Route: 042
     Dates: start: 20080326, end: 20080326
  3. PREDNISONE TAB [Suspect]
     Route: 048
  4. PANTOPRAZOL [Concomitant]
     Dosage: DOSE: UNK
     Dates: start: 20071218
  5. ATORVASTATINA [Concomitant]
     Dosage: DOSE: UNK
  6. UROLOSIN [Concomitant]
     Dosage: DOSE: UNK
     Dates: start: 20071218
  7. DINISOR [Concomitant]
     Dosage: DOSE: UNK
  8. CARDURA [Concomitant]
     Dosage: DOSE: UNK
     Dates: start: 20080120
  9. DEPRAX                             /00447702/ [Concomitant]
     Dosage: DOSE: UNK
     Dates: start: 20080128
  10. METOCLOPRAMIDA [Concomitant]
     Dosage: DOSE: UNK
     Dates: start: 20080129
  11. BECLOMETASONA [Concomitant]
     Dosage: DOSE: UNK
     Dates: start: 20080201
  12. MAGNESIA                           /00552801/ [Concomitant]
     Dosage: DOSE: UNK
     Dates: start: 20080211
  13. HIBOR [Concomitant]
     Dates: start: 20080128, end: 20080201

REACTIONS (1)
  - EPISTAXIS [None]
